FAERS Safety Report 8999868 (Version 1)
Quarter: 2013Q1

REPORT INFORMATION
  Report Type: Report from Study
  Country: CA (occurrence: CA)
  Receive Date: 20130102
  Receipt Date: 20130102
  Transmission Date: 20140127
  Serious: Yes (Hospitalization)
  Sender: FDA-Public Use
  Company Number: CA-JNJFOC-20121212721

PATIENT
  Age: 42 Year
  Sex: Female
  Weight: 83 kg

DRUGS (13)
  1. REMICADE [Suspect]
     Indication: COLITIS ULCERATIVE
     Route: 042
     Dates: start: 20111030
  2. REMICADE [Suspect]
     Indication: COLITIS ULCERATIVE
     Route: 042
     Dates: start: 20121220
  3. WOMAN^S ONE-A-DAY [Concomitant]
     Route: 065
  4. SYNTHROID [Concomitant]
     Route: 065
  5. ASACOL [Concomitant]
     Route: 065
  6. PREDNISONE [Concomitant]
     Dosage: DAILY TAPERING DOSE
     Route: 065
  7. VENLAFAXINE [Concomitant]
     Route: 065
  8. GABAPENTIN [Concomitant]
     Dosage: HS (AT BED TIME)
     Route: 065
  9. ATIVAN [Concomitant]
     Dosage: HS (BED TIME)
     Route: 065
  10. CALCIUM AND VIT D [Concomitant]
     Route: 065
  11. K-DUR [Concomitant]
     Route: 065
  12. HYDROMORPHONE [Concomitant]
     Dosage: AS NEEDED
     Route: 065
  13. ALL OTHER THERAPEUTIC PRODUCTS [Concomitant]
     Route: 065

REACTIONS (5)
  - Haematochezia [Recovering/Resolving]
  - Vomiting [Recovering/Resolving]
  - Abdominal pain [Recovering/Resolving]
  - Erythema [Recovering/Resolving]
  - Swelling face [Recovering/Resolving]
